FAERS Safety Report 26066172 (Version 1)
Quarter: 2025Q4

REPORT INFORMATION
  Report Type: Spontaneous
  Country: CN (occurrence: CN)
  Receive Date: 20251119
  Receipt Date: 20251119
  Transmission Date: 20260118
  Serious: Yes (Life-Threatening, Hospitalization)
  Sender: ELI LILLY AND COMPANY
  Company Number: CN-Merck Healthcare KGaA-2025057532

PATIENT
  Age: 45 Year
  Sex: Female

DRUGS (6)
  1. ERBITUX [Suspect]
     Active Substance: CETUXIMAB
     Indication: Colon cancer
     Dosage: 16 MG, EVERY 2 WEEKS
     Route: 041
     Dates: start: 20251017, end: 20251017
  2. ERBITUX [Suspect]
     Active Substance: CETUXIMAB
     Dosage: 104 MG, EVERY 2 WEEKS
     Route: 041
     Dates: start: 20251017, end: 20251017
  3. ERBITUX [Suspect]
     Active Substance: CETUXIMAB
     Dosage: 680 MG, EVERY 2 WEEKS
     Route: 041
     Dates: start: 20251017, end: 20251017
  4. IRINOTECAN HYDROCHLORIDE [Suspect]
     Active Substance: IRINOTECAN HYDROCHLORIDE
     Indication: Colon cancer
     Dosage: 230 MG, DAILY
     Route: 041
     Dates: start: 20251017, end: 20251017
  5. SODIUM CHLORIDE [Concomitant]
     Active Substance: SODIUM CHLORIDE
     Indication: Medication dilution
     Dosage: 250 ML, DAILY
     Route: 041
     Dates: start: 20251017, end: 20251017
  6. DEXTROSE [Concomitant]
     Active Substance: DEXTROSE MONOHYDRATE
     Indication: Medication dilution
     Dosage: 250 ML, DAILY
     Route: 041
     Dates: start: 20251017, end: 20251017

REACTIONS (3)
  - Full blood count decreased [Recovering/Resolving]
  - Hypersensitivity [Recovering/Resolving]
  - Off label use [Unknown]

NARRATIVE: CASE EVENT DATE: 20251017
